FAERS Safety Report 13226980 (Version 1)
Quarter: 2017Q1

REPORT INFORMATION
  Report Type: Spontaneous
  Country: AU (occurrence: AU)
  Receive Date: 20170213
  Receipt Date: 20170213
  Transmission Date: 20170428
  Serious: Yes (Other)
  Sender: FDA-Public Use
  Company Number: AU-ASTELLAS-2017US004153

PATIENT

DRUGS (1)
  1. BETMIGA [Suspect]
     Active Substance: MIRABEGRON
     Indication: HYPERTONIC BLADDER
     Dosage: 25 MG DAILY DOSE, UNKNOWN FREQ.
     Route: 048

REACTIONS (1)
  - Atrial fibrillation [Unknown]
